FAERS Safety Report 17201471 (Version 1)
Quarter: 2019Q4

REPORT INFORMATION
  Report Type: Spontaneous
  Country: JP (occurrence: JP)
  Receive Date: 20191226
  Receipt Date: 20191226
  Transmission Date: 20200122
  Serious: Yes (Other)
  Sender: FDA-Public Use
  Company Number: JP-009507513-1912JPN011073

PATIENT
  Age: 95 Year
  Sex: Male

DRUGS (4)
  1. BILASTINE [Concomitant]
     Active Substance: BILASTINE
     Dosage: UNKNOWN
     Route: 048
  2. SUVOREXANT. [Concomitant]
     Active Substance: SUVOREXANT
     Dosage: UNKNOWN
     Route: 048
  3. DONEPEZIL HYDROCHLORIDE. [Concomitant]
     Active Substance: DONEPEZIL HYDROCHLORIDE
     Dosage: UNKNOWN
     Route: 048
  4. REFLEX [Suspect]
     Active Substance: MIRTAZAPINE
     Indication: HALLUCINATION, VISUAL
     Dosage: 15 MG
     Route: 048
     Dates: start: 20191216, end: 20191216

REACTIONS (2)
  - Off label use [Unknown]
  - Sedation complication [Recovering/Resolving]

NARRATIVE: CASE EVENT DATE: 201912
